FAERS Safety Report 8255169-8 (Version None)
Quarter: 2012Q1

REPORT INFORMATION
  Report Type: 
  Country: None (occurrence: None)
  Receive Date: 20120330
  Receipt Date: 20120320
  Transmission Date: 20120608
  Serious: Yes (Hospitalization)
  Sender: FDA-Public Use
  Company Number: CIO12004929

PATIENT
  Sex: Female

DRUGS (1)
  1. METAMUCIL-2 [Suspect]
     Indication: PRODUCT USED FOR UNKNOWN INDICATION
     Dosage: ORAL
     Route: 048
     Dates: start: 20120223

REACTIONS (3)
  - ABDOMINAL DISTENSION [None]
  - VOMITING [None]
  - PANCREATITIS ACUTE [None]
